FAERS Safety Report 19482754 (Version 1)
Quarter: 2021Q3

REPORT INFORMATION
  Report Type: Spontaneous
  Country: US (occurrence: US)
  Receive Date: 20210701
  Receipt Date: 20210701
  Transmission Date: 20211014
  Serious: Yes (Death, Hospitalization)
  Sender: FDA-Public Use
  Company Number: US-MYLANLABS-2021M1039180

PATIENT
  Age: 62 Year
  Sex: Female

DRUGS (1)
  1. METHOTREXATE. [Suspect]
     Active Substance: METHOTREXATE
     Indication: RHEUMATOID ARTHRITIS
     Route: 065

REACTIONS (8)
  - Cardiac failure congestive [Unknown]
  - Shock [Unknown]
  - Respiratory failure [Unknown]
  - Condition aggravated [Unknown]
  - Hypoxia [Unknown]
  - Pneumothorax [Fatal]
  - Pneumocystis jirovecii pneumonia [Fatal]
  - Lymphopenia [Unknown]

NARRATIVE: CASE EVENT DATE: 2020
